FAERS Safety Report 10704593 (Version 2)
Quarter: 2015Q1

REPORT INFORMATION
  Report Type: Report from Study
  Country: US (occurrence: US)
  Receive Date: 20150112
  Receipt Date: 20150112
  Transmission Date: 20150721
  Serious: Yes (Other)
  Sender: FDA-Public Use
  Company Number: US-SA-2013SA131462

PATIENT
  Age: 48 Year
  Sex: Female

DRUGS (3)
  1. AUBAGIO [Suspect]
     Active Substance: TERIFLUNOMIDE
     Indication: MULTIPLE SCLEROSIS
     Route: 048
     Dates: start: 20131212
  2. CORTICOSTEROIDS [Suspect]
     Active Substance: CORTICOSTEROID NOS
     Indication: SINUSITIS
     Route: 065
  3. AUBAGIO [Suspect]
     Active Substance: TERIFLUNOMIDE
     Indication: MULTIPLE SCLEROSIS
     Route: 048

REACTIONS (10)
  - Fall [Unknown]
  - Hepatic enzyme increased [Unknown]
  - Hypoaesthesia [Unknown]
  - Gastrointestinal sounds abnormal [Unknown]
  - Ill-defined disorder [Unknown]
  - Nausea [Unknown]
  - Chest discomfort [Unknown]
  - Pharyngeal disorder [Recovering/Resolving]
  - Balance disorder [Unknown]
  - Nasal congestion [Unknown]

NARRATIVE: CASE EVENT DATE: 201412
